FAERS Safety Report 9469607 (Version 3)
Quarter: 2014Q1

REPORT INFORMATION
  Report Type: Spontaneous
  Country: US (occurrence: US)
  Receive Date: 20130822
  Receipt Date: 20140104
  Transmission Date: 20141002
  Serious: Yes (Other)
  Sender: FDA-Public Use
  Company Number: US-BRISTOL-MYERS SQUIBB COMPANY-19190883

PATIENT
  Age: 52 Year
  Sex: Female

DRUGS (16)
  1. BYETTA [Suspect]
     Indication: TYPE 2 DIABETES MELLITUS
     Dosage: 5MCG:29AUG09
     Dates: start: 20081209, end: 201201
  2. VICTOZA [Suspect]
     Indication: TYPE 2 DIABETES MELLITUS
     Dates: start: 200812, end: 201206
  3. SYNTHROID [Concomitant]
  4. METFORMIN HCL TABS [Concomitant]
     Dosage: 3OCT09,23JUL09
     Route: 048
     Dates: start: 20081204
  5. CRESTOR [Concomitant]
  6. LISINOPRIL [Concomitant]
     Dosage: 10MAR09,23JUL09
     Route: 048
     Dates: start: 20081204
  7. LISINOPRIL [Concomitant]
  8. HYDROCHLOROTHIAZIDE [Concomitant]
  9. HYDROCHLOROTHIAZIDE [Concomitant]
  10. ROCALTROL [Concomitant]
  11. CALCIUM [Concomitant]
  12. EXFORGE HCT [Concomitant]
  13. GLIPIZIDE [Concomitant]
     Dosage: 10MAR09,23JUL09
     Route: 048
     Dates: start: 20081204
  14. SIMVASTATIN [Concomitant]
     Dosage: 10MAR09
     Route: 048
     Dates: start: 20081204
  15. TERBINAFINE [Concomitant]
     Route: 048
     Dates: start: 20090401
  16. XIBROM [Concomitant]

REACTIONS (1)
  - Thyroid cancer [Unknown]
